FAERS Safety Report 13601717 (Version 1)
Quarter: 2017Q2

REPORT INFORMATION
  Report Type: Spontaneous
  Country: US (occurrence: US)
  Receive Date: 20170601
  Receipt Date: 20170601
  Transmission Date: 20170830
  Serious: No
  Sender: FDA-Public Use
  Company Number: US-009507513-1705USA014553

PATIENT
  Age: 50 Year
  Sex: Female

DRUGS (1)
  1. SINGULAIR [Suspect]
     Active Substance: MONTELUKAST SODIUM
     Indication: PROPHYLAXIS
     Dosage: 4 MG TABLET DAILY
     Route: 048
     Dates: start: 20170424, end: 20170526

REACTIONS (2)
  - Product use in unapproved indication [Unknown]
  - Alopecia [Unknown]

NARRATIVE: CASE EVENT DATE: 201704
